FAERS Safety Report 4760865-0 (Version None)
Quarter: 2005Q3

REPORT INFORMATION
  Report Type: 
  Country: None (occurrence: None)
  Receive Date: 20050826
  Receipt Date: 20041124
  Transmission Date: 20060218
  Serious: Yes (Death)
  Sender: FDA-Public Use
  Company Number: USA-2004-0017818

PATIENT
  Age: 58 Year
  Sex: Female
  Weight: 90.7 kg

DRUGS (5)
  1. OXYCODONE HCL [Suspect]
  2. DIAZEPAM [Suspect]
     Dosage: UNK MG
  3. PAROXETINE HCL [Suspect]
  4. METHYLPHENIDATE HCL [Suspect]
  5. RITALIN [Suspect]

REACTIONS (2)
  - INTENTIONAL MISUSE [None]
  - MULTIPLE DRUG OVERDOSE [None]
